FAERS Safety Report 16115292 (Version 1)
Quarter: 2019Q1

REPORT INFORMATION
  Report Type: Spontaneous
  Country: US (occurrence: US)
  Receive Date: 20190325
  Receipt Date: 20190325
  Transmission Date: 20190418
  Serious: Yes (Life-Threatening)
  Sender: FDA-Public Use
  Company Number: US-THE PROACTIV LLC-2064558

PATIENT
  Age: 15 Year
  Sex: Male

DRUGS (8)
  1. PROACTIV MD DAILY OIL CONTROL SPF 30 [Concomitant]
     Active Substance: AVOBENZONE\OCTISALATE\OCTOCRYLENE
     Route: 061
     Dates: start: 20190309, end: 20190316
  2. PROACTIV REDNESS RELIEF SERUM [Concomitant]
     Route: 061
     Dates: start: 20190309, end: 20190316
  3. PROACTIV GREEN TEA MOISTURIZER [Concomitant]
     Active Substance: COSMETICS
     Route: 061
     Dates: start: 20190309, end: 20190316
  4. PROACTIV MD DEEP CLEANSING FACE WASH [Concomitant]
     Active Substance: COSMETICS
     Route: 061
     Dates: start: 20190309, end: 20190316
  5. CLONIDINE. [Concomitant]
     Active Substance: CLONIDINE
  6. PROACTIV SOLUTION DEEP CLEANSING WASH [Suspect]
     Active Substance: SALICYLIC ACID
     Indication: ACNE
     Route: 061
     Dates: start: 20190309, end: 20190316
  7. FOCALIN XR [Concomitant]
     Active Substance: DEXMETHYLPHENIDATE HYDROCHLORIDE
  8. PROACTIV MD ADAPALENE ACNE TREATMENT [Concomitant]
     Active Substance: ADAPALENE
     Route: 061
     Dates: start: 20190309, end: 20190316

REACTIONS (5)
  - Dry skin [Recovered/Resolved]
  - Urticaria [Recovered/Resolved]
  - Erythema [Recovered/Resolved]
  - Hypersensitivity [Recovered/Resolved]
  - Dyspnoea [Recovered/Resolved]

NARRATIVE: CASE EVENT DATE: 20190310
